FAERS Safety Report 7142187-6 (Version None)
Quarter: 2010Q4

REPORT INFORMATION
  Report Type: 
  Country: None (occurrence: None)
  Receive Date: 20101203
  Receipt Date: 20101203
  Transmission Date: 20110411
  Serious: No
  Sender: FDA-Public Use
  Company Number: None

PATIENT
  Age: 63 Year
  Sex: Female
  Weight: 103.4201 kg

DRUGS (1)
  1. PROPOXYPHENE NAPSYLATE W/ ACETAMINOPHEN [Suspect]
     Indication: PAIN
     Dosage: N-100 DAILY INJ
     Dates: start: 20030129, end: 20101201

REACTIONS (2)
  - HEART RATE IRREGULAR [None]
  - PRODUCT QUALITY ISSUE [None]
